FAERS Safety Report 8229802-0 (Version None)
Quarter: 2012Q1

REPORT INFORMATION
  Report Type: 
  Country: None (occurrence: None)
  Receive Date: 20120322
  Receipt Date: 20120309
  Transmission Date: 20120608
  Serious: Yes (Other)
  Sender: FDA-Public Use
  Company Number: US-MYLANLABS-2012S1005460

PATIENT
  Age: 23 Year
  Sex: Male

DRUGS (3)
  1. PERCOCET [Suspect]
     Indication: INTENTIONAL OVERDOSE
     Route: 048
  2. ALPRAZOLAM [Suspect]
     Indication: INTENTIONAL OVERDOSE
     Dosage: UP TO 42 TABLETS
     Route: 048
  3. RISPERIDONE [Suspect]
     Indication: INTENTIONAL OVERDOSE
     Route: 048

REACTIONS (3)
  - ATRIOVENTRICULAR BLOCK [None]
  - INTENTIONAL OVERDOSE [None]
  - SINUS BRADYCARDIA [None]
